FAERS Safety Report 7645308-1 (Version None)
Quarter: 2011Q3

REPORT INFORMATION
  Report Type: 
  Country: None (occurrence: None)
  Receive Date: 20110729
  Receipt Date: 20110714
  Transmission Date: 20111222
  Serious: Yes (Other)
  Sender: FDA-Public Use
  Company Number: JP-WATSON-2011-11413

PATIENT
  Age: 61 Year
  Sex: Male

DRUGS (3)
  1. CLARITHROMYCIN [Suspect]
     Indication: PURPURA
     Dosage: 400 MG, DAILY
  2. PREDNISOLONE [Suspect]
     Indication: PURPURA
     Dosage: 60 MG, DAILY
  3. METHYLPREDNISOLONE [Suspect]
     Indication: PURPURA
     Dosage: UNK

REACTIONS (2)
  - HYPERGLYCAEMIA [None]
  - DRUG INEFFECTIVE [None]
